FAERS Safety Report 8439375-5 (Version None)
Quarter: 2012Q2

REPORT INFORMATION
  Report Type: 
  Country: None (occurrence: None)
  Receive Date: 20120615
  Receipt Date: 20120613
  Transmission Date: 20120825
  Serious: Yes (Death, Other)
  Sender: FDA-Public Use
  Company Number: CN-PFIZER INC-2012141851

PATIENT
  Age: 26 Week
  Sex: Female

DRUGS (1)
  1. SUTENT [Suspect]
     Indication: GASTROINTESTINAL STROMAL TUMOUR

REACTIONS (4)
  - DISEASE PROGRESSION [None]
  - MULTI-ORGAN FAILURE [None]
  - GASTROINTESTINAL STROMAL TUMOUR [None]
  - ASCITES [None]
